FAERS Safety Report 19763295 (Version 1)
Quarter: 2021Q3

REPORT INFORMATION
  Report Type: Spontaneous
  Country: US (occurrence: US)
  Receive Date: 20210830
  Receipt Date: 20210830
  Transmission Date: 20211014
  Serious: Yes (Other)
  Sender: FDA-Public Use
  Company Number: US-ABBVIE-21K-163-4049297-00

PATIENT
  Sex: Male

DRUGS (1)
  1. TESTOSTERONE. [Suspect]
     Active Substance: TESTOSTERONE
     Indication: PRODUCT USED FOR UNKNOWN INDICATION
     Dosage: 3 PUMPS TOTAL PER DAY
     Route: 061

REACTIONS (5)
  - Blood testosterone decreased [Unknown]
  - Acne [Unknown]
  - Erectile dysfunction [Unknown]
  - Incorrect dose administered [Unknown]
  - Blood testosterone increased [Unknown]
